FAERS Safety Report 7673620-9 (Version None)
Quarter: 2011Q3

REPORT INFORMATION
  Report Type: 
  Country: None (occurrence: None)
  Receive Date: 20110808
  Receipt Date: 20110725
  Transmission Date: 20111222
  Serious: Yes (Other)
  Sender: FDA-Public Use
  Company Number: UTC-007415

PATIENT
  Age: 3 Year
  Sex: Female
  Weight: 13 kg

DRUGS (4)
  1. BOSENTAN (BOSENTAN) [Concomitant]
  2. SILDENAFIL CITRATE [Concomitant]
  3. REMODULIN [Suspect]
     Indication: PULMONARY ARTERIAL HYPERTENSION
     Dosage: 72 UG/KG (0.05 UG/KG, 1 IN 1 MIN), SUBCUTANEOUS ; 2.88 UG/KG (0.002 UG/KG, 1 IN 1 MIN), INTRAVENOUS
     Route: 058
     Dates: start: 20110404
  4. REMODULIN [Suspect]
     Indication: PULMONARY ARTERIAL HYPERTENSION
     Dosage: 72 UG/KG (0.05 UG/KG, 1 IN 1 MIN), SUBCUTANEOUS ; 2.88 UG/KG (0.002 UG/KG, 1 IN 1 MIN), INTRAVENOUS
     Route: 058
     Dates: start: 20100214, end: 20110404

REACTIONS (1)
  - CONVULSION [None]
